FAERS Safety Report 10240860 (Version 1)
Quarter: 2014Q1

REPORT INFORMATION
  Report Type: Spontaneous
  Country: US (occurrence: None)
  Receive Date: 20140306
  Receipt Date: 20140306
  Transmission Date: 20141002
  Serious: Yes (Other)
  Sender: FDA-Public Use
  Company Number: 163-21880-13061249

PATIENT
  Age: 80 Year
  Sex: Female

DRUGS (3)
  1. REVLIMID (LENALIDOMIDE) (CAPSULES) [Suspect]
     Route: 048
     Dates: start: 20121101
  2. DIGOXIN (DIGOXIN) (TABLETS) [Concomitant]
  3. PRADAXA (DABIGATRAN ETEXILATE MESILATE) (CAPSULES) [Concomitant]

REACTIONS (1)
  - Atrial fibrillation [None]
